FAERS Safety Report 5280781-8 (Version None)
Quarter: 2007Q1

REPORT INFORMATION
  Report Type: 
  Country: None (occurrence: None)
  Receive Date: 20070329
  Receipt Date: 20070319
  Transmission Date: 20070707
  Serious: Yes (Other)
  Sender: FDA-Public Use
  Company Number: ZA-PFIZER INC-2007020484

PATIENT
  Age: 65 Year
  Sex: Female

DRUGS (6)
  1. CELEBREX [Suspect]
     Indication: BACK PAIN
     Route: 048
     Dates: start: 20070315, end: 20070319
  2. CELEBREX [Suspect]
     Indication: MUSCULOSKELETAL PAIN
  3. BISOPROLOL FUMARATE [Concomitant]
     Route: 048
  4. VERAPAMIL [Concomitant]
     Route: 048
  5. ACETYLSALICYLIC ACID SRT [Concomitant]
     Route: 048
  6. ROSUVASTATIN [Concomitant]
     Route: 048

REACTIONS (5)
  - DRUG HYPERSENSITIVITY [None]
  - EYE SWELLING [None]
  - HYPERSENSITIVITY [None]
  - RASH [None]
  - SWELLING FACE [None]
